FAERS Safety Report 8359181-X (Version None)
Quarter: 2012Q2

REPORT INFORMATION
  Report Type: 
  Country: None (occurrence: None)
  Receive Date: 20120511
  Receipt Date: 20120511
  Transmission Date: 20120825
  Serious: Yes (Life-Threatening)
  Sender: FDA-Public Use
  Company Number: None

PATIENT
  Age: 43 Year
  Sex: Female
  Weight: 72.5755 kg

DRUGS (1)
  1. GEODON [Suspect]
     Indication: VICTIM OF SEXUAL ABUSE
     Dosage: 80MG. ONCE DAILY
     Dates: start: 20010101, end: 20020101

REACTIONS (1)
  - CARDIAC ARREST [None]
